FAERS Safety Report 21583258 (Version 1)
Quarter: 2022Q4

REPORT INFORMATION
  Report Type: Report from Study
  Country: EG (occurrence: EG)
  Receive Date: 20221111
  Receipt Date: 20221111
  Transmission Date: 20230113
  Serious: Yes (Other)
  Sender: FDA-Public Use
  Company Number: EG-002147023-NVSC2022EG251957

PATIENT
  Age: 38 Year
  Sex: Female

DRUGS (4)
  1. KISQALI [Suspect]
     Active Substance: RIBOCICLIB
     Indication: Breast cancer metastatic
     Dosage: 3 DOSAGE FORM, QD
     Route: 048
     Dates: start: 202206
  2. FEMARA [Suspect]
     Active Substance: LETROZOLE
     Indication: Breast cancer metastatic
     Dosage: 1 DOSAGE FORM, QD
     Route: 048
     Dates: start: 202203
  3. CALCIUM [Concomitant]
     Active Substance: CALCIUM
     Indication: Osteoporosis
     Dosage: UNK (1-2) DOSAGE FORM, QD
     Route: 065
     Dates: start: 2020
  4. LEVOTHYROXINE [Concomitant]
     Active Substance: LEVOTHYROXINE
     Indication: Hypothyroidism
     Dosage: 1 DOSAGE FORM, QD
     Route: 065
     Dates: start: 2019

REACTIONS (2)
  - Decreased immune responsiveness [Not Recovered/Not Resolved]
  - Anaemia [Unknown]

NARRATIVE: CASE EVENT DATE: 20220601
